APPROVED DRUG PRODUCT: MISOPROSTOL
Active Ingredient: MISOPROSTOL
Strength: 0.2MG
Dosage Form/Route: TABLET;ORAL
Application: A091667 | Product #002
Applicant: NOVEL LABORATORIES INC
Approved: Jul 25, 2012 | RLD: No | RS: No | Type: DISCN